FAERS Safety Report 4532349-6 (Version None)
Quarter: 2004Q4

REPORT INFORMATION
  Report Type: 
  Country: None (occurrence: None)
  Receive Date: 20041206
  Receipt Date: 20041027
  Transmission Date: 20050328
  Serious: No
  Sender: FDA-Public Use
  Company Number: US_0411107790

PATIENT
  Age: 39 Year
  Sex: Female

DRUGS (2)
  1. CYMBALTA [Suspect]
     Indication: MAJOR DEPRESSION
     Dosage: 30 MG DAY
     Dates: start: 20041015
  2. LEVOTHYROXINE SODIUM [Concomitant]

REACTIONS (4)
  - DISTURBANCE IN ATTENTION [None]
  - FATIGUE [None]
  - NAUSEA [None]
  - RESTLESSNESS [None]
